FAERS Safety Report 9765096 (Version 1)
Quarter: 2013Q4

REPORT INFORMATION
  Report Type: Spontaneous
  Country: US (occurrence: None)
  Receive Date: 20131213
  Receipt Date: 20131213
  Transmission Date: 20140711
  Serious: Yes (Other)
  Sender: FDA-Public Use
  Company Number: 2013SA024713

PATIENT
  Sex: 0

DRUGS (1)
  1. CAPSAICIN [Suspect]
     Indication: PAIN IN EXTREMITY
     Dosage: ; UNKNOWN ;  TOPICAL

REACTIONS (2)
  - Thermal burn [None]
  - Skin exfoliation [None]
